FAERS Safety Report 8460604-6 (Version None)
Quarter: 2012Q2

REPORT INFORMATION
  Report Type: 
  Country: None (occurrence: None)
  Receive Date: 20120622
  Receipt Date: 20120613
  Transmission Date: 20120825
  Serious: No
  Sender: FDA-Public Use
  Company Number: US-ASTRAZENECA-2012SE39601

PATIENT
  Age: 50 Year
  Sex: Female

DRUGS (1)
  1. SEROQUEL XR [Suspect]
     Route: 048
     Dates: start: 20110613

REACTIONS (3)
  - BLOOD PRESSURE INCREASED [None]
  - WEIGHT INCREASED [None]
  - SLEEP DISORDER [None]
